FAERS Safety Report 9931626 (Version 1)
Quarter: 2014Q1

REPORT INFORMATION
  Report Type: Spontaneous
  Country: DE (occurrence: None)
  Receive Date: 20140224
  Receipt Date: 20140224
  Transmission Date: 20141002
  Serious: Yes (Congenital Anomaly, Other)
  Sender: FDA-Public Use
  Company Number: AUR-APL-2014-01840

PATIENT
  Age: 1 Day
  Sex: Female
  Weight: 1.73 kg

DRUGS (1)
  1. LAMOTRIGINE [Suspect]
     Indication: JUVENILE MYOCLONIC EPILEPSY
     Route: 064
     Dates: start: 20111231

REACTIONS (14)
  - Maternal drugs affecting foetus [None]
  - Foetal growth restriction [None]
  - Congenital anaemia [None]
  - Small for dates baby [None]
  - Caesarean section [None]
  - Premature baby [None]
  - Ventricular septal defect [None]
  - Atrial septal defect [None]
  - Pneumocystis jirovecii pneumonia [None]
  - Respiratory failure [None]
  - Combined immunodeficiency [None]
  - Stem cell transplant [None]
  - Graft versus host disease [None]
  - Hydrops foetalis [None]
